FAERS Safety Report 7531268-0 (Version None)
Quarter: 2011Q2

REPORT INFORMATION
  Report Type: 
  Country: None (occurrence: None)
  Receive Date: 20110608
  Receipt Date: 20110601
  Transmission Date: 20111010
  Serious: No
  Sender: FDA-Public Use
  Company Number: US-JNJFOC-20110601218

PATIENT
  Sex: Female
  Weight: 81.65 kg

DRUGS (5)
  1. DURAGESIC-100 [Suspect]
     Route: 062
     Dates: start: 20010101
  2. DURAGESIC-100 [Suspect]
     Indication: BACK PAIN
     Dosage: 50UG/HR ONCE EVERY 4 DAYS OR AS NEEDED
     Route: 062
     Dates: start: 20110501
  3. DURAGESIC-100 [Suspect]
     Indication: BACK DISORDER
     Route: 062
     Dates: end: 20110501
  4. TOPAMAX [Concomitant]
     Indication: PAIN
     Route: 048
     Dates: start: 20030101
  5. OXYCODONE HCL [Concomitant]
     Indication: PAIN
     Dosage: 6-8 TIMES PER DAY
     Route: 048
     Dates: start: 20050101

REACTIONS (4)
  - ROAD TRAFFIC ACCIDENT [None]
  - PAIN [None]
  - HEADACHE [None]
  - DRUG PRESCRIBING ERROR [None]
